FAERS Safety Report 21970884 (Version 1)
Quarter: 2023Q1

REPORT INFORMATION
  Report Type: Other
  Country: US (occurrence: None)
  Receive Date: 20230209
  Receipt Date: 20230209
  Transmission Date: 20230417
  Serious: Yes (Other)
  Sender: FDA-Public Use
  Company Number: US-ROCHE-3277201

PATIENT
  Sex: Female

DRUGS (8)
  1. OCREVUS [Suspect]
     Active Substance: OCRELIZUMAB
     Indication: Multiple sclerosis
     Dosage: 300 MG DAY 1 AND 15, 600 MG EVERY 6 MONTHS. DATE OF TREATMENT: 12/MAR/2020, 21/JAN/2022 AND 17/JUN/2
     Route: 042
  2. OCREVUS [Suspect]
     Active Substance: OCRELIZUMAB
     Indication: Relapsing multiple sclerosis
  3. AUBAGIO [Concomitant]
     Active Substance: TERIFLUNOMIDE
     Dosage: PREVIOUS TREATMENT
  4. BENADRYL [Concomitant]
     Active Substance: DIPHENHYDRAMINE HYDROCHLORIDE
  5. HYDROCORTISONE [Concomitant]
     Active Substance: HYDROCORTISONE
  6. VITAMINS [Concomitant]
     Active Substance: VITAMINS
     Route: 048
  7. MAGNESIUM OXIDE [Concomitant]
     Active Substance: MAGNESIUM OXIDE
     Route: 048
  8. ERGOCALCIFEROL [Concomitant]
     Active Substance: ERGOCALCIFEROL
     Dosage: 1.25 MG
     Route: 048

REACTIONS (2)
  - Mastoiditis [Unknown]
  - Tremor [Unknown]
